FAERS Safety Report 25536915 (Version 4)
Quarter: 2025Q4

REPORT INFORMATION
  Report Type: Spontaneous
  Country: CN (occurrence: CN)
  Receive Date: 20250710
  Receipt Date: 20251126
  Transmission Date: 20260118
  Serious: Yes (Other)
  Sender: ASTELLAS
  Company Number: CN-ASTELLAS-2025-AER-037425

PATIENT
  Age: 73 Year
  Sex: Male

DRUGS (2)
  1. PADCEV [Suspect]
     Active Substance: ENFORTUMAB VEDOTIN-EJFV
     Indication: Product used for unknown indication
     Route: 065
     Dates: start: 20250702
  2. TORIPALIMAB [Concomitant]
     Active Substance: TORIPALIMAB
     Indication: Product used for unknown indication
     Route: 065
     Dates: start: 20250702

REACTIONS (6)
  - Intestinal obstruction [Recovering/Resolving]
  - Diarrhoea [Unknown]
  - Abdominal pain [Unknown]
  - Pyrexia [Unknown]
  - Blister [Unknown]
  - Symptom recurrence [Unknown]

NARRATIVE: CASE EVENT DATE: 20250703
